FAERS Safety Report 6069792-2 (Version None)
Quarter: 2009Q1

REPORT INFORMATION
  Report Type: 
  Country: None (occurrence: None)
  Receive Date: 20090209
  Receipt Date: 20090203
  Transmission Date: 20090719
  Serious: Yes (Death)
  Sender: FDA-Public Use
  Company Number: US-CELGENEUS-163-21880-08101278

PATIENT
  Sex: Female

DRUGS (1)
  1. REVLIMID [Suspect]
     Indication: MULTIPLE MYELOMA
     Route: 048
     Dates: start: 20080701, end: 20080801

REACTIONS (5)
  - DISEASE PROGRESSION [None]
  - HYPOAESTHESIA [None]
  - MULTIPLE MYELOMA [None]
  - PANCYTOPENIA [None]
  - PARAESTHESIA [None]
